FAERS Safety Report 19670834 (Version 2)
Quarter: 2021Q3

REPORT INFORMATION
  Report Type: Report from Study
  Country: GB (occurrence: GB)
  Receive Date: 20210806
  Receipt Date: 20210901
  Transmission Date: 20211014
  Serious: Yes (Death)
  Sender: FDA-Public Use
  Company Number: GB-CELGENEUS-GBR-20210801312

PATIENT
  Age: 66 Year
  Sex: Male
  Weight: 92.8 kg

DRUGS (4)
  1. BB2121 [Suspect]
     Active Substance: INVESTIGATIONAL PRODUCT
     Dosage: 457.65 X 10^6 CAR + T CELLS
     Route: 041
     Dates: start: 20210518, end: 20210518
  2. FLUDARABINE [Suspect]
     Active Substance: FLUDARABINE PHOSPHATE
     Indication: PLASMA CELL MYELOMA
     Route: 041
  3. BB2121 [Suspect]
     Active Substance: INVESTIGATIONAL PRODUCT
     Indication: PLASMA CELL MYELOMA
     Dosage: 456.58 X 10^6 CAR + T CELLS
     Route: 041
     Dates: start: 20200708, end: 20200708
  4. CYCLOPHOSPHAMIDE. [Suspect]
     Active Substance: CYCLOPHOSPHAMIDE
     Indication: PLASMA CELL MYELOMA
     Route: 041

REACTIONS (1)
  - Plasma cell myeloma [Fatal]

NARRATIVE: CASE EVENT DATE: 20210717
